FAERS Safety Report 25384967 (Version 1)
Quarter: 2025Q2

REPORT INFORMATION
  Report Type: Spontaneous
  Country: IR (occurrence: IR)
  Receive Date: 20250602
  Receipt Date: 20250602
  Transmission Date: 20250717
  Serious: Yes (Other)
  Sender: ReacX Pharmaceuticals
  Company Number: IR-REACX PHARMACEUTICALS-2025RCX00076

PATIENT
  Age: 39 Year
  Sex: Male

DRUGS (5)
  1. BUPRENORPHINE [Suspect]
     Active Substance: BUPRENORPHINE
     Route: 060
  2. BUPRENORPHINE [Suspect]
     Active Substance: BUPRENORPHINE
     Route: 045
  3. TRAMADOL [Concomitant]
     Active Substance: TRAMADOL
  4. OPIUM [Concomitant]
     Active Substance: OPIUM
  5. METHAMPHETAMINE [Concomitant]
     Active Substance: METHAMPHETAMINE

REACTIONS (8)
  - Nasal septum deviation [Unknown]
  - Nasal septum perforation [Unknown]
  - Nasal congestion [Unknown]
  - Nasal mucosal disorder [Unknown]
  - Pneumonia [Unknown]
  - Chronic sinusitis [Unknown]
  - Drug abuse [Unknown]
  - Dyspnoea [Unknown]
